FAERS Safety Report 9287870 (Version 2)
Quarter: 2013Q4

REPORT INFORMATION
  Report Type: Spontaneous
  Country: US (occurrence: US)
  Receive Date: 20130514
  Receipt Date: 20131227
  Transmission Date: 20140711
  Serious: Yes (Hospitalization)
  Sender: FDA-Public Use
  Company Number: US-BAYER-2013-058274

PATIENT
  Age: 32 Year
  Sex: Female
  Weight: 74.83 kg

DRUGS (6)
  1. YAZ [Suspect]
     Dosage: UNK
     Route: 048
     Dates: start: 2009
  2. HYDROCORTISONE [Concomitant]
     Dosage: 1 % APPLY 2 TIMES A DAY
     Route: 061
     Dates: start: 20090810
  3. BACTROBAN [Concomitant]
     Dosage: 2 % APPLY [TWICE A DAY FOR] 7 DAYS
     Route: 061
     Dates: start: 20090810
  4. IBUPROFEN [Concomitant]
     Dosage: UNK
  5. MORPHINE [Concomitant]
     Dosage: UNK
  6. PRILOSEC [Concomitant]
     Dosage: UNK

REACTIONS (10)
  - Thrombosis [None]
  - Pulmonary embolism [Recovered/Resolved]
  - Dyspnoea [None]
  - Abdominal pain [None]
  - Rash [None]
  - Pain [None]
  - General physical health deterioration [None]
  - Emotional distress [None]
  - Anxiety [None]
  - Pain [None]
